FAERS Safety Report 8747456 (Version 10)
Quarter: 2017Q2

REPORT INFORMATION
  Report Type: Spontaneous
  Country: BR (occurrence: BR)
  Receive Date: 20120827
  Receipt Date: 20170529
  Transmission Date: 20170830
  Serious: Yes (Hospitalization, Other)
  Sender: FDA-Public Use
  Company Number: BR-PFIZER INC-2012203515

PATIENT
  Age: 63 Year
  Sex: Male
  Weight: 82 kg

DRUGS (18)
  1. OLCADIL [Concomitant]
     Active Substance: CLOXAZOLAM
     Indication: SLEEP DISORDER
     Dosage: 1 MG, 1 TO 2X DAY
  2. BETASERC [Concomitant]
     Active Substance: BETAHISTINE
     Dosage: UNK
  3. LIPITOR [Suspect]
     Active Substance: ATORVASTATIN CALCIUM
     Indication: LABORATORY TEST NORMAL
     Dosage: 40 MG, DAILY
     Route: 048
  4. SELOZOK [Concomitant]
     Active Substance: METOPROLOL SUCCINATE
     Dosage: 25 MG, UNK
  5. PLAVIX [Suspect]
     Active Substance: CLOPIDOGREL BISULFATE
     Indication: STENT PLACEMENT
     Dosage: 25 MG, UNK
     Dates: start: 201202
  6. ATENOL [Concomitant]
     Active Substance: ATENOLOL
     Dosage: 50
  7. LIPITOR [Suspect]
     Active Substance: ATORVASTATIN CALCIUM
     Indication: HYPERCHOLESTEROLAEMIA
     Dosage: 10 MG, DAILY
     Route: 048
     Dates: start: 201105
  8. XARELTO [Concomitant]
     Active Substance: RIVAROXABAN
     Dosage: 20 MG, 1X/DAY
  9. LIPITOR [Suspect]
     Active Substance: ATORVASTATIN CALCIUM
     Indication: CAROTID ARTERY OCCLUSION
     Dosage: 20 MG, DAILY
     Route: 048
     Dates: start: 20110523
  10. CITALOR [Suspect]
     Active Substance: ATORVASTATIN
     Indication: LABORATORY TEST NORMAL
     Dosage: 20 MG, 2X/DAY (TOTAL OF 40MG)(WITH 60 TABLETS FOR MORE THAN 5 YEARS)
  11. CITALOR [Suspect]
     Active Substance: ATORVASTATIN
     Indication: CAROTID ARTERY OCCLUSION
     Dosage: 40 MG, DAILY
     Route: 048
     Dates: start: 201301
  12. COUMADIN [Concomitant]
     Active Substance: WARFARIN SODIUM
     Indication: ANTICOAGULANT THERAPY
     Dosage: UNK
     Dates: start: 201202
  13. AAS [Concomitant]
     Active Substance: ASPIRIN
     Dosage: 200 MG, UNK
  14. ASPIRINA [Concomitant]
     Active Substance: ASPIRIN
  15. ASPIRINA PREVENT [Concomitant]
     Active Substance: ASPIRIN
     Dosage: 100 MG, UNK
  16. ESCITALOPRAM [Concomitant]
     Active Substance: ESCITALOPRAM OXALATE
     Dosage: 10 MG, 1X/DAY
  17. PLAVIX [Suspect]
     Active Substance: CLOPIDOGREL BISULFATE
     Indication: ANTIPLATELET THERAPY
  18. OLCADIL [Concomitant]
     Active Substance: CLOXAZOLAM
     Indication: SEDATION
     Dosage: 2 MG, UNK

REACTIONS (21)
  - Ischaemic stroke [Unknown]
  - Myalgia [Unknown]
  - Constipation [Recovering/Resolving]
  - Drug ineffective [Unknown]
  - Cardiovascular disorder [Unknown]
  - Cardiac disorder [Unknown]
  - Platelet disorder [Unknown]
  - Abnormal faeces [Recovering/Resolving]
  - Nervous system disorder [Unknown]
  - Coronary artery occlusion [Unknown]
  - Faeces soft [Unknown]
  - Carotid artery occlusion [Unknown]
  - Skin cancer [Recovered/Resolved]
  - Meniere^s disease [Unknown]
  - Vitamin D abnormal [Unknown]
  - Carotid artery disease [Unknown]
  - Carotid artery calcification [Unknown]
  - Arteriosclerosis [Recovering/Resolving]
  - Pain [Unknown]
  - Carotid arteriosclerosis [Unknown]
  - Angiopathy [Unknown]

NARRATIVE: CASE EVENT DATE: 2012
